FAERS Safety Report 10052744 (Version 1)
Quarter: 2014Q2

REPORT INFORMATION
  Report Type: Spontaneous
  Country: BR (occurrence: BR)
  Receive Date: 20140402
  Receipt Date: 20140402
  Transmission Date: 20141212
  Serious: Yes (Other)
  Sender: FDA-Public Use
  Company Number: BR-JNJFOC-20140317241

PATIENT
  Age: 81 Year
  Sex: Female

DRUGS (3)
  1. REMINYL ER [Suspect]
     Indication: DEMENTIA ALZHEIMER^S TYPE
     Route: 065
     Dates: start: 201310
  2. CAPTOPRIL [Concomitant]
     Indication: BLOOD PRESSURE
     Route: 065
  3. FORASEQ [Concomitant]
     Indication: CARDIAC DISORDER
     Route: 065

REACTIONS (6)
  - Hypertension [Recovered/Resolved]
  - Rib fracture [Recovered/Resolved]
  - Fall [Recovered/Resolved]
  - Malaise [Unknown]
  - Chest pain [Unknown]
  - Dizziness [Unknown]
